FAERS Safety Report 7794334-0 (Version None)
Quarter: 2011Q4

REPORT INFORMATION
  Report Type: 
  Country: None (occurrence: None)
  Receive Date: 20111004
  Receipt Date: 20110927
  Transmission Date: 20120403
  Serious: Yes (Hospitalization)
  Sender: FDA-Public Use
  Company Number: CH-PFIZER INC-2011229561

PATIENT
  Age: 74 Year
  Sex: Female

DRUGS (4)
  1. LYRICA [Suspect]
     Indication: EPILEPSY
     Dosage: 150 MG, 2X/DAY
     Route: 048
     Dates: end: 20110801
  2. ATORVASTATIN CALCIUM [Suspect]
     Indication: HYPERLIPIDAEMIA
     Dosage: 20 MG, 1X/DAY
     Route: 048
     Dates: end: 20110818
  3. AMITRIPTYLINE HCL [Suspect]
     Dosage: 50 MG, 1X/DAY
     Route: 048
     Dates: end: 20110818
  4. KEPPRA [Concomitant]
     Indication: EPILEPSY
     Dosage: 1000 MG, 2X/DAY
     Route: 048

REACTIONS (3)
  - AUTOIMMUNE HEPATITIS [None]
  - HEPATITIS TOXIC [None]
  - OCULAR ICTERUS [None]
